FAERS Safety Report 24209560 (Version 1)
Quarter: 2024Q3

REPORT INFORMATION
  Report Type: Report from Study
  Country: DE (occurrence: DE)
  Receive Date: 20240814
  Receipt Date: 20240814
  Transmission Date: 20241017
  Serious: Yes (Other)
  Sender: PFIZER
  Company Number: DE-PFIZER INC-202400233695

PATIENT
  Age: 4 Year
  Sex: Female

DRUGS (8)
  1. CRIZOTINIB [Suspect]
     Active Substance: CRIZOTINIB
     Indication: Anaplastic large cell lymphoma T- and null-cell types
     Dosage: 560 MG/M2
     Route: 048
  2. VINBLASTINE [Suspect]
     Active Substance: VINBLASTINE
     Dosage: 6 MG/M2, PER WEEK
  3. VINBLASTINE [Suspect]
     Active Substance: VINBLASTINE
     Dosage: 5 MG/M2 PER WEEK
  4. VINBLASTINE [Suspect]
     Active Substance: VINBLASTINE
     Dosage: 4 MG/M2 PER WEEK (N=11)
  5. DEXAMETHASONE [Concomitant]
     Active Substance: DEXAMETHASONE
     Indication: Disease progression
     Dosage: 10 MG/M2, DAIL, 5 DAYS EVERY 4 WEEKS
  6. METHOTREXATE [Concomitant]
     Active Substance: METHOTREXATE
     Route: 037
  7. CYTARABINE [Concomitant]
     Active Substance: CYTARABINE
     Route: 037
  8. PREDNISOLONE [Concomitant]
     Active Substance: PREDNISOLONE
     Route: 037

REACTIONS (2)
  - Impaired gastric emptying [Unknown]
  - Polyneuropathy [Unknown]
